FAERS Safety Report 23282404 (Version 1)
Quarter: 2023Q4

REPORT INFORMATION
  Report Type: Spontaneous
  Country: US (occurrence: None)
  Receive Date: 20231208
  Receipt Date: 20231208
  Transmission Date: 20240110
  Serious: Yes (Hospitalization)
  Sender: FDA-Public Use
  Company Number: None

PATIENT
  Age: 68 Year
  Sex: Male

DRUGS (13)
  1. TACROLIMUS [Suspect]
     Active Substance: TACROLIMUS
     Indication: Lung transplant
     Dosage: FREQUENCY : TWICE A DAY;?
     Route: 048
     Dates: start: 20231006
  2. MYCOPHENOLIC ACID [Suspect]
     Active Substance: MYCOPHENOLIC ACID
     Indication: Lung transplant
     Dosage: FREQUENCY : TWICE A DAY;?
     Route: 048
     Dates: start: 20231006
  3. aspirin 81mg tablets [Concomitant]
     Dates: start: 20231201
  4. AZITHROMYCIN ANHYDROUS [Concomitant]
     Active Substance: AZITHROMYCIN ANHYDROUS
     Dates: start: 20231006
  5. calcium citrate D3 max [Concomitant]
     Dates: start: 20231103
  6. posaconazole 100mg [Concomitant]
     Dates: start: 20231201
  7. PRAVASTATIN [Concomitant]
     Active Substance: PRAVASTATIN
     Dates: start: 20231201
  8. PREDNISONE [Concomitant]
     Active Substance: PREDNISONE
     Dates: start: 20231016
  9. bactrim 400-800mg [Concomitant]
     Dates: start: 20231201
  10. TAMSULOSIN [Concomitant]
     Active Substance: TAMSULOSIN
     Dates: start: 20231013
  11. TRAZODONE HYDROCHLORIDE [Concomitant]
     Active Substance: TRAZODONE HYDROCHLORIDE
     Dates: start: 20231016
  12. trelegy ellipta 100-62.5mg [Concomitant]
     Dates: start: 20231201
  13. VALGANCICLOVIR HYDROCHLORIDE [Concomitant]
     Active Substance: VALGANCICLOVIR HYDROCHLORIDE
     Dates: start: 20231201

REACTIONS (4)
  - Illness [None]
  - Atrial fibrillation [None]
  - Pneumonia [None]
  - Pulmonary thrombosis [None]

NARRATIVE: CASE EVENT DATE: 20231202
